FAERS Safety Report 4954433-5 (Version None)
Quarter: 2006Q1

REPORT INFORMATION
  Report Type: 
  Country: None (occurrence: None)
  Receive Date: 20060322
  Receipt Date: 20060316
  Transmission Date: 20060701
  Serious: Yes (Hospitalization)
  Sender: FDA-Public Use
  Company Number: J081-002-002168

PATIENT
  Age: 63 Year
  Sex: Male

DRUGS (2)
  1. ARICEPT [Suspect]
     Indication: DEMENTIA
     Dosage: SEE IMAGE
     Route: 048
     Dates: start: 20060111, end: 20060116
  2. ARICEPT [Suspect]
     Indication: DEMENTIA
     Dosage: SEE IMAGE
     Route: 048
     Dates: start: 20060117, end: 20060125

REACTIONS (10)
  - ACTIVITIES OF DAILY LIVING IMPAIRED [None]
  - AKINESIA [None]
  - CONDITION AGGRAVATED [None]
  - DELIRIUM [None]
  - FALL [None]
  - HALLUCINATION, VISUAL [None]
  - INCONTINENCE [None]
  - MUSCULOSKELETAL STIFFNESS [None]
  - PARKINSONISM [None]
  - TREMOR [None]
